FAERS Safety Report 6104304-6 (Version None)
Quarter: 2009Q1

REPORT INFORMATION
  Report Type: 
  Country: None (occurrence: None)
  Receive Date: 20090305
  Receipt Date: 20090220
  Transmission Date: 20090719
  Serious: Yes (Other)
  Sender: FDA-Public Use
  Company Number: US-ELI_LILLY_AND_COMPANY-US200902006072

PATIENT
  Sex: Female

DRUGS (1)
  1. FORTEO [Suspect]
     Dates: end: 20070201

REACTIONS (3)
  - ADENOMA BENIGN [None]
  - BONE DENSITY DECREASED [None]
  - HYPERPARATHYROIDISM [None]
